FAERS Safety Report 5050964-0 (Version None)
Quarter: 2006Q3

REPORT INFORMATION
  Report Type: 
  Country: None (occurrence: None)
  Receive Date: 20060710
  Receipt Date: 20060630
  Transmission Date: 20061208
  Serious: Yes (Other)
  Sender: FDA-Public Use
  Company Number: 2006082547

PATIENT
  Sex: Male

DRUGS (1)
  1. ZOLOFT [Suspect]

REACTIONS (2)
  - NEOPLASM MALIGNANT [None]
  - VOMITING [None]
